FAERS Safety Report 9370838 (Version 3)
Quarter: 2013Q4

REPORT INFORMATION
  Report Type: Report from Study
  Country: TH (occurrence: TH)
  Receive Date: 20130626
  Receipt Date: 20131003
  Transmission Date: 20140711
  Serious: Yes (Other)
  Sender: FDA-Public Use
  Company Number: TH-GILEAD-2013-0077549

PATIENT
  Age: 28 Year
  Sex: Male

DRUGS (7)
  1. EMTRICITABINE/TENOFOVIR DISOPROXIL FUMARATE [Suspect]
     Indication: PROPHYLAXIS AGAINST HIV INFECTION
     Dosage: UNK
     Dates: start: 20111020, end: 20130304
  2. VITAMIN C                          /00008001/ [Concomitant]
     Indication: ROUTINE HEALTH MAINTENANCE
     Dosage: UNK
     Dates: start: 20120815, end: 201210
  3. PARACETAMOL [Concomitant]
     Indication: RHINITIS ALLERGIC
     Dosage: UNK
     Dates: start: 20121211, end: 20121213
  4. SULIDINE [Concomitant]
     Indication: RHINITIS ALLERGIC
     Dosage: UNK
     Dates: start: 20121213, end: 20121214
  5. SULIDINE [Concomitant]
     Dosage: UNK
     Dates: start: 20121225, end: 20121226
  6. DECOLGEN                           /00369801/ [Concomitant]
     Indication: RHINITIS ALLERGIC
     Dosage: UNK
     Dates: start: 20130103, end: 20130103
  7. BENZATHINE PENICILLIN [Concomitant]
     Indication: SYPHILIS
     Dosage: UNK
     Dates: start: 20130207, end: 20130207

REACTIONS (2)
  - HIV test positive [Unknown]
  - Drug ineffective [Unknown]
